FAERS Safety Report 6520287-9 (Version None)
Quarter: 2009Q4

REPORT INFORMATION
  Report Type: 
  Country: None (occurrence: None)
  Receive Date: 20091229
  Receipt Date: 20091217
  Transmission Date: 20100525
  Serious: Yes (Hospitalization)
  Sender: FDA-Public Use
  Company Number: PHHY2009PL56449

PATIENT
  Sex: Female
  Weight: 48 kg

DRUGS (2)
  1. CERTICAN [Suspect]
     Indication: RENAL TRANSPLANT
     Dosage: 0.75 MG, BID
     Route: 048
     Dates: start: 20090623, end: 20091006
  2. PROGRAF [Concomitant]
     Indication: IMMUNOSUPPRESSION
     Dosage: 2X1.5 MG
     Dates: start: 20040423

REACTIONS (3)
  - ABDOMINAL PAIN [None]
  - MENORRHAGIA [None]
  - OVARIAN CYST [None]
